FAERS Safety Report 17169121 (Version 1)
Quarter: 2019Q4

REPORT INFORMATION
  Report Type: Spontaneous
  Country: US (occurrence: US)
  Receive Date: 20191218
  Receipt Date: 20191218
  Transmission Date: 20200122
  Serious: No
  Sender: FDA-Public Use
  Company Number: US-AMGEN-USASP2019210439

PATIENT
  Age: 56 Year
  Sex: Female

DRUGS (1)
  1. NEULASTA [Suspect]
     Active Substance: PEGFILGRASTIM
     Indication: PRODUCT USED FOR UNKNOWN INDICATION
     Dosage: UNK, 48 HOURS,AFTER CHEMO
     Route: 065

REACTIONS (5)
  - Pyrexia [Recovered/Resolved]
  - Chills [Unknown]
  - Spinal pain [Unknown]
  - Pain [Unknown]
  - Arthralgia [Unknown]
